FAERS Safety Report 21633805 (Version 2)
Quarter: 2022Q4

REPORT INFORMATION
  Report Type: Report from Study
  Country: IN (occurrence: IN)
  Receive Date: 20221123
  Receipt Date: 20221223
  Transmission Date: 20230113
  Serious: Yes (Other)
  Sender: FDA-Public Use
  Company Number: IN-002147023-NVSC2022IN162929

PATIENT
  Sex: Male

DRUGS (10)
  1. SECUKINUMAB [Suspect]
     Active Substance: SECUKINUMAB
     Indication: Psoriasis
     Dosage: 300 MG, QMO (150 X 2 INJ)
     Route: 058
     Dates: start: 20210813
  2. SECUKINUMAB [Suspect]
     Active Substance: SECUKINUMAB
     Dosage: 300 MG, QMO (150 X 2 INJ)
     Route: 058
     Dates: start: 20220803
  3. SECUKINUMAB [Suspect]
     Active Substance: SECUKINUMAB
     Dosage: UNK
     Route: 065
     Dates: start: 20220924
  4. SECUKINUMAB [Suspect]
     Active Substance: SECUKINUMAB
     Dosage: 300 MG, QMO (FOR 2 MONTHS)
     Route: 058
     Dates: start: 20221023
  5. SECUKINUMAB [Suspect]
     Active Substance: SECUKINUMAB
     Dosage: 300 MG, QMO
     Route: 058
     Dates: start: 20221123
  6. HALOVATE S [Concomitant]
     Indication: Product used for unknown indication
     Dosage: UNK, BID
     Route: 065
  7. METHOTREXATE [Concomitant]
     Active Substance: METHOTREXATE
     Indication: Product used for unknown indication
     Dosage: UNK (WEDNESDAY FOR 6 WEEKS)
     Route: 065
  8. METHOTREXATE [Concomitant]
     Active Substance: METHOTREXATE
     Dosage: 15 MG
     Route: 065
  9. FOLVITE [Concomitant]
     Active Substance: FOLIC ACID
     Indication: Product used for unknown indication
     Dosage: 1 DOSAGE FORM (EVERY FRIDAY)
     Route: 065
  10. ATORVASTATIN CALCIUM [Concomitant]
     Active Substance: ATORVASTATIN CALCIUM
     Indication: Product used for unknown indication
     Dosage: 1 DOSAGE FORM, QD (FOR 6 WEEKS)
     Route: 065

REACTIONS (5)
  - Cutaneous vasculitis [Unknown]
  - Malaise [Unknown]
  - Psoriasis [Recovering/Resolving]
  - Skin fissures [Unknown]
  - Inappropriate schedule of product administration [Unknown]
